FAERS Safety Report 18180631 (Version 1)
Quarter: 2020Q3

REPORT INFORMATION
  Report Type: Spontaneous
  Country: US (occurrence: US)
  Receive Date: 20200820
  Receipt Date: 20200820
  Transmission Date: 20201103
  Serious: Yes (Hospitalization)
  Sender: FDA-Public Use
  Company Number: None

PATIENT
  Age: 41 Year
  Sex: Female

DRUGS (1)
  1. CAPECITABINE 500MG TAB [Suspect]
     Active Substance: CAPECITABINE
     Indication: RECTAL CANCER
     Dosage: ?          OTHER DOSE:3 TABS;OTHER ROUTE:PO?D1?14 OF 21 D CYCLE?
     Route: 048
     Dates: start: 20200502

REACTIONS (3)
  - Therapy interrupted [None]
  - Skin discolouration [None]
  - Rash [None]

NARRATIVE: CASE EVENT DATE: 20200819
